FAERS Safety Report 19625537 (Version 1)
Quarter: 2021Q3

REPORT INFORMATION
  Report Type: Report from Study
  Country: CA (occurrence: CA)
  Receive Date: 20210729
  Receipt Date: 20210729
  Transmission Date: 20211014
  Serious: Yes (Other)
  Sender: FDA-Public Use
  Company Number: CA-JNJFOC-20210664490

PATIENT
  Age: 45 Year
  Sex: Male

DRUGS (1)
  1. SIMPONI [Suspect]
     Active Substance: GOLIMUMAB
     Indication: ANKYLOSING SPONDYLITIS
     Route: 058

REACTIONS (5)
  - Ankylosing spondylitis [Not Recovered/Not Resolved]
  - Vasculitis [Unknown]
  - Uveitis [Not Recovered/Not Resolved]
  - Blister [Not Recovered/Not Resolved]
  - Oral infection [Unknown]

NARRATIVE: CASE EVENT DATE: 20210718
